FAERS Safety Report 4388498-9 (Version None)
Quarter: 2004Q2

REPORT INFORMATION
  Report Type: 
  Country: None (occurrence: None)
  Receive Date: 20040624
  Receipt Date: 20040611
  Transmission Date: 20050107
  Serious: Yes (Hospitalization)
  Sender: FDA-Public Use
  Company Number: 207159

PATIENT
  Sex: Female

DRUGS (2)
  1. MABTHERA(RITUXIMAB, RITUXIMAB) CONC FOR SOLUTION FOR INFUSION [Suspect]
     Indication: LYMPHOMA
     Dosage: 500 MG, 1/WEEK, INTRAVENOUS
     Route: 042
     Dates: start: 20030317, end: 20030422
  2. INTRON A [Suspect]
     Indication: LYMPHOMA
     Dosage: 3 MIU, QD, SUBCUTANEOUS
     Route: 058

REACTIONS (1)
  - HYPOPHOSPHATAEMIA [None]
